FAERS Safety Report 9143848 (Version 1)
Quarter: 2013Q1

REPORT INFORMATION
  Report Type: Spontaneous
  Country: IT (occurrence: IT)
  Receive Date: 20130306
  Receipt Date: 20130306
  Transmission Date: 20140127
  Serious: Yes (Other)
  Sender: FDA-Public Use
  Company Number: PHHY2013IT020735

PATIENT
  Age: 88 Year
  Sex: Female

DRUGS (2)
  1. ZOLPIDEM [Suspect]
     Indication: INSOMNIA
     Dosage: 10 MG, DAILY
     Route: 048
     Dates: start: 20130123, end: 20130128
  2. PROTELOS [Concomitant]
     Indication: OSTEOPOROSIS
     Dosage: 2 G, UNK

REACTIONS (2)
  - Mania [Recovered/Resolved]
  - Hallucination [Recovered/Resolved]
